FAERS Safety Report 25486703 (Version 1)
Quarter: 2025Q2

REPORT INFORMATION
  Report Type: Spontaneous
  Country: GR (occurrence: GR)
  Receive Date: 20250627
  Receipt Date: 20250627
  Transmission Date: 20250716
  Serious: Yes (Hospitalization, Other)
  Sender: TOLMAR
  Company Number: GR-ASTELLAS-2020US032654

PATIENT
  Age: 29 Year
  Sex: Female

DRUGS (5)
  1. ELIGARD [Suspect]
     Active Substance: LEUPROLIDE ACETATE
     Indication: In vitro fertilisation
  2. ELIGARD [Suspect]
     Active Substance: LEUPROLIDE ACETATE
     Indication: In vitro fertilisation
  3. CHORIONIC GONADOTROPIN [Suspect]
     Active Substance: CHORIOGONADOTROPIN ALFA
     Indication: In vitro fertilisation
     Route: 065
  4. FOLLITROPIN [Suspect]
     Active Substance: FOLLITROPIN
     Indication: In vitro fertilisation
     Route: 065
  5. CABERGOLINE [Suspect]
     Active Substance: CABERGOLINE
     Indication: In vitro fertilisation
     Route: 065

REACTIONS (2)
  - Ovarian hyperstimulation syndrome [Recovered/Resolved]
  - Off label use [Unknown]
